FAERS Safety Report 15598836 (Version 1)
Quarter: 2018Q4

REPORT INFORMATION
  Report Type: Spontaneous
  Country: US (occurrence: US)
  Receive Date: 20181108
  Receipt Date: 20181108
  Transmission Date: 20190205
  Serious: Yes (Other)
  Sender: FDA-Public Use
  Company Number: US-AKORN PHARMACEUTICALS-2018AKN01716

PATIENT
  Sex: Female
  Weight: 61.22 kg

DRUGS (2)
  1. MYORISAN [Suspect]
     Active Substance: ISOTRETINOIN
     Indication: ACNE CYSTIC
     Dosage: 2 DOSAGE UNITS, 1X/DAY, ^TOGETHER IN THE EVENING^
     Route: 048
     Dates: start: 201808, end: 20181023
  2. SERTRALINE [Concomitant]
     Active Substance: SERTRALINE HYDROCHLORIDE
     Dosage: 50 MG, 1X/DAY

REACTIONS (4)
  - Crying [Recovering/Resolving]
  - Suicidal ideation [Recovering/Resolving]
  - Off label use [Recovered/Resolved]
  - Depressed mood [Recovering/Resolving]

NARRATIVE: CASE EVENT DATE: 2018
